FAERS Safety Report 22322775 (Version 4)
Quarter: 2023Q4

REPORT INFORMATION
  Report Type: Report from Study
  Country: US (occurrence: US)
  Receive Date: 20230516
  Receipt Date: 20231004
  Transmission Date: 20240110
  Serious: Yes (Other)
  Sender: FDA-Public Use
  Company Number: US-ABBVIE-4299304

PATIENT
  Age: 59 Year
  Sex: Male

DRUGS (2)
  1. RINVOQ [Suspect]
     Active Substance: UPADACITINIB
     Indication: Rheumatoid arthritis
     Dosage: FORM STRENGTH: 15 MG ; FREQUENCY TEXT: DAILY
     Route: 048
  2. RINVOQ [Suspect]
     Active Substance: UPADACITINIB
     Indication: Rheumatoid arthritis
     Dosage: FORM STRENGTH: 15 MG
     Route: 048
     Dates: start: 20201001, end: 20230927

REACTIONS (6)
  - Embolism venous [Recovered/Resolved]
  - Lower limb fracture [Unknown]
  - Immobile [Unknown]
  - Coronary arterial stent insertion [Unknown]
  - Peripheral swelling [Not Recovered/Not Resolved]
  - Venous thrombosis [Not Recovered/Not Resolved]

NARRATIVE: CASE EVENT DATE: 20230101
